FAERS Safety Report 5988141-9 (Version None)
Quarter: 2008Q4

REPORT INFORMATION
  Report Type: 
  Country: None (occurrence: None)
  Receive Date: 20081208
  Receipt Date: 20081208
  Transmission Date: 20090506
  Serious: No
  Sender: FDA-Public Use
  Company Number: None

PATIENT

DRUGS (1)
  1. ISOSORBIDE MONONITRATE [Suspect]

REACTIONS (13)
  - BALANCE DISORDER [None]
  - BLOOD PRESSURE INADEQUATELY CONTROLLED [None]
  - FALL [None]
  - FATIGUE [None]
  - HAEMORRHAGE [None]
  - HEAD INJURY [None]
  - HEADACHE [None]
  - HYPOTENSION [None]
  - JOINT SWELLING [None]
  - OPEN WOUND [None]
  - PAIN [None]
  - PRODUCT QUALITY ISSUE [None]
  - SKIN DISCOLOURATION [None]
